FAERS Safety Report 9401053 (Version 1)
Quarter: 2013Q3

REPORT INFORMATION
  Report Type: Spontaneous
  Country: GB (occurrence: GB)
  Receive Date: 20130715
  Receipt Date: 20130715
  Transmission Date: 20140515
  Serious: Yes (Other)
  Sender: FDA-Public Use
  Company Number: GB-WATSON-2013-12376

PATIENT
  Age: 26 Year
  Sex: 0

DRUGS (1)
  1. DOXYCYCLINE HYCLATE (UNKNOWN) [Suspect]
     Indication: PELVIC PAIN
     Dosage: 200 MG, UNK
     Route: 048
     Dates: start: 20130612, end: 20130619

REACTIONS (1)
  - Tinnitus [Not Recovered/Not Resolved]
